FAERS Safety Report 24201089 (Version 1)
Quarter: 2024Q3

REPORT INFORMATION
  Report Type: Spontaneous
  Country: US (occurrence: None)
  Receive Date: 20240809
  Receipt Date: 20240809
  Transmission Date: 20241017
  Serious: Yes (Life-Threatening, Hospitalization, Disabling)
  Sender: Public
  Company Number: None

PATIENT
  Age: 71 Year
  Sex: Female
  Weight: 74.84 kg

DRUGS (2)
  1. TEMAZEPAM [Suspect]
     Active Substance: TEMAZEPAM
     Indication: Depression
  2. TEMAZEPAM [Suspect]
     Active Substance: TEMAZEPAM
     Indication: Insomnia

REACTIONS (4)
  - Nervousness [None]
  - Rash [None]
  - Pruritus [None]
  - Rash erythematous [None]
